FAERS Safety Report 15434593 (Version 1)
Quarter: 2018Q4

REPORT INFORMATION
  Report Type: Spontaneous
  Country: GB (occurrence: IT)
  Receive Date: 20180927
  Receipt Date: 20180927
  Transmission Date: 20190204
  Serious: Yes (Hospitalization)
  Sender: FDA-Public Use
  Company Number: IT-FRESENIUS KABI-FK201809920

PATIENT
  Age: 71 Year
  Sex: Male

DRUGS (8)
  1. ADDAMEL N [Suspect]
     Active Substance: CHROMIC CHLORIDE\CUPROUS CHLORIDE\FERRIC CHLORIDE\MANGANESE CHLORIDE\POTASSIUM IODIDE\SODIUM FLUORIDE\SODIUM MOLYBDATE DIHYDRATE\SODIUM SELENITE\ZINC CHLORIDE
     Dosage: VIA PICC AND PERIPHERAL BUTTERFLY NEEDLE. DURING ALL HOSPITALIZATIONS THE PN INFUSIONS WERE DONE NOT
     Route: 042
     Dates: start: 201807, end: 201808
  2. ASCORBIC ACID/PYRIDOXINE HYDROCHLORIDE/BIOTIN/TOCOPHEROL/FOLIC ACID/COLECALCIFEROL/CYANOCOBALAMIN/RE [Suspect]
     Active Substance: VITAMINS
     Indication: PARENTERAL NUTRITION
     Dosage: VIA PICC, DOSE REINTRODUCED
     Route: 042
     Dates: start: 20180824, end: 20180825
  3. ASCORBIC ACID/PYRIDOXINE HYDROCHLORIDE/BIOTIN/TOCOPHEROL/FOLIC ACID/COLECALCIFEROL/CYANOCOBALAMIN/RE [Suspect]
     Active Substance: VITAMINS
     Dosage: VIA PICC AND PERIPHERAL BUTTERFLY NEEDLE. DURING ALL HOSPITALIZATIONS THE PN INFUSIONS WERE DONE NOT
     Route: 042
     Dates: start: 201807, end: 201808
  4. ADDAMEL N [Suspect]
     Active Substance: CHROMIC CHLORIDE\CUPROUS CHLORIDE\FERRIC CHLORIDE\MANGANESE CHLORIDE\POTASSIUM IODIDE\SODIUM FLUORIDE\SODIUM MOLYBDATE DIHYDRATE\SODIUM SELENITE\ZINC CHLORIDE
     Indication: PARENTERAL NUTRITION
     Dosage: VIA PICC, DOSE REINTRODUCED
     Route: 042
     Dates: start: 20180824, end: 20180825
  5. GLUCOSE (MANUFACTURER UNKNOWN) [Suspect]
     Active Substance: DEXTROSE
     Indication: PARENTERAL NUTRITION
     Dosage: VIA PICC AND PERIPHERAL BUTTERFLY NEEDLE. DURING ALL HOSPITALIZATIONS THE PN INFUSIONS WERE DONE NOT
     Route: 042
     Dates: start: 201807, end: 201808
  6. GLUCOSE (MANUFACTURER UNKNOWN) [Suspect]
     Active Substance: DEXTROSE
     Dosage: VIA PICC, DOSE REINTRODUCED
     Route: 042
     Dates: start: 20180824, end: 20180825
  7. OLIMEL E [Suspect]
     Active Substance: AMINO ACIDS\DEXTROSE\ELECTROLYTES NOS\SOYBEAN OIL
     Dosage: VIA PICC, DOSE REINTRODUCED
     Route: 042
     Dates: start: 20180824, end: 20180825
  8. OLIMEL E [Suspect]
     Active Substance: AMINO ACIDS\DEXTROSE\ELECTROLYTES NOS\SOYBEAN OIL
     Indication: PARENTERAL NUTRITION
     Dosage: VIA PICC AND PERIPHERAL BUTTERFLY NEEDLE. DURING ALL HOSPITALIZATIONS THE PN INFUSIONS WERE DONE NOT
     Route: 042
     Dates: start: 201807, end: 201808

REACTIONS (1)
  - Pyrexia [Unknown]

NARRATIVE: CASE EVENT DATE: 20180717
